FAERS Safety Report 20022977 (Version 1)
Quarter: 2021Q4

REPORT INFORMATION
  Report Type: Report from Study
  Country: US (occurrence: US)
  Receive Date: 20211102
  Receipt Date: 20211102
  Transmission Date: 20220303
  Serious: Yes (Hospitalization)
  Sender: FDA-Public Use
  Company Number: US-NOVARTISPH-NVSC2021US245465

PATIENT
  Sex: Male
  Weight: 60 kg

DRUGS (1)
  1. KYMRIAH [Suspect]
     Active Substance: TISAGENLECLEUCEL
     Indication: Acute lymphocytic leukaemia
     Dosage: 1.2E8 CAR-POSITIVE ONCE/SINGLE
     Route: 042
     Dates: start: 20211006, end: 20211006

REACTIONS (1)
  - Illness [Unknown]
